FAERS Safety Report 20112594 (Version 2)
Quarter: 2021Q4

REPORT INFORMATION
  Report Type: Report from Study
  Country: BR (occurrence: BR)
  Receive Date: 20211125
  Receipt Date: 20211201
  Transmission Date: 20220303
  Serious: Yes (Other)
  Sender: FDA-Public Use
  Company Number: BR-NOVARTISPH-NVSC2021BR266158

PATIENT
  Age: 91 Year
  Sex: Female

DRUGS (4)
  1. LUCENTIS [Suspect]
     Active Substance: RANIBIZUMAB
     Indication: Age-related macular degeneration
     Dosage: UNK
     Route: 042
     Dates: start: 20210728
  2. LUCENTIS [Suspect]
     Active Substance: RANIBIZUMAB
     Dosage: UNK
     Route: 065
     Dates: start: 20211117
  3. LUCENTIS [Suspect]
     Active Substance: RANIBIZUMAB
     Dosage: UNK
     Route: 065
     Dates: start: 20210922
  4. VIGAMOX [Suspect]
     Active Substance: MOXIFLOXACIN HYDROCHLORIDE
     Indication: Inflammation
     Dosage: 4 TIMES
     Route: 065
     Dates: start: 20210728

REACTIONS (8)
  - Glaucoma [Unknown]
  - Application site pain [Recovered/Resolved]
  - Application site pain [Recovered/Resolved]
  - Visual impairment [Unknown]
  - Vision blurred [Recovering/Resolving]
  - Lacrimation increased [Recovered/Resolved]
  - Lacrimation increased [Recovered/Resolved]
  - Lacrimation increased [Unknown]

NARRATIVE: CASE EVENT DATE: 20210728
